FAERS Safety Report 12964949 (Version 2)
Quarter: 2017Q1

REPORT INFORMATION
  Report Type: Spontaneous
  Country: US (occurrence: US)
  Receive Date: 20161122
  Receipt Date: 20170210
  Transmission Date: 20170428
  Serious: Yes (Other)
  Sender: FDA-Public Use
  Company Number: US-BAYER-2016-222382

PATIENT
  Age: 28 Year
  Sex: Female

DRUGS (1)
  1. MIRENA [Suspect]
     Active Substance: LEVONORGESTREL
     Indication: CONTRACEPTION
     Dosage: 20 MCG/24HR, CONT
     Route: 015
     Dates: start: 20161005, end: 20161102

REACTIONS (5)
  - Drug ineffective [None]
  - Abortion spontaneous [None]
  - Post abortion haemorrhage [None]
  - Device dislocation [None]
  - Pregnancy with contraceptive device [None]

NARRATIVE: CASE EVENT DATE: 20161102
